FAERS Safety Report 6178948-X (Version None)
Quarter: 2009Q2

REPORT INFORMATION
  Report Type: 
  Country: None (occurrence: None)
  Receive Date: 20090505
  Receipt Date: 20090428
  Transmission Date: 20091009
  Serious: No
  Sender: FDA-Public Use
  Company Number: US-JNJFOC-20090407146

PATIENT
  Sex: Male
  Weight: 83.92 kg

DRUGS (4)
  1. DURAGESIC-100 [Suspect]
     Indication: PAIN
     Route: 062
  2. ROXICODONE [Concomitant]
     Indication: PAIN
     Dosage: AS NEEDED
     Route: 048
  3. VENLAFAXINE HCL [Concomitant]
     Indication: NEURALGIA
     Route: 048
  4. AVINZA [Concomitant]
     Indication: PAIN
     Dosage: 90MG/CAPSULE/100MG
     Route: 048

REACTIONS (2)
  - EXPIRED DRUG ADMINISTERED [None]
  - INCORRECT DRUG ADMINISTRATION DURATION [None]
